FAERS Safety Report 18312459 (Version 1)
Quarter: 2020Q3

REPORT INFORMATION
  Report Type: Spontaneous
  Country: US (occurrence: US)
  Receive Date: 20200924
  Receipt Date: 20200924
  Transmission Date: 20201103
  Serious: Yes (Other)
  Sender: FDA-Public Use
  Company Number: None

PATIENT
  Age: 45 Year
  Sex: Male
  Weight: 111.13 kg

DRUGS (1)
  1. SULFAMETHOXAZOLE/TRIMETHOPRIM(SULFAMETHOXZALE 800MG/TRIMETHOPRIM 160MG [Suspect]
     Active Substance: SULFAMETHOXAZOLE\TRIMETHOPRIM
     Indication: CELLULITIS
     Dates: start: 20200624, end: 20200625

REACTIONS (5)
  - Rash erythematous [None]
  - Rash pruritic [None]
  - Ocular hyperaemia [None]
  - Rash [None]
  - Eye swelling [None]

NARRATIVE: CASE EVENT DATE: 20200625
